FAERS Safety Report 18530553 (Version 1)
Quarter: 2020Q4

REPORT INFORMATION
  Report Type: Spontaneous
  Country: US (occurrence: US)
  Receive Date: 20201121
  Receipt Date: 20201121
  Transmission Date: 20210114
  Serious: Yes (Other)
  Sender: FDA-Public Use
  Company Number: US-009507513-2011USA010017

PATIENT
  Age: 3489 Week
  Sex: Male
  Weight: 81.6 kg

DRUGS (21)
  1. ATORVASTATIN [Concomitant]
     Active Substance: ATORVASTATIN
     Indication: HYPERLIPIDAEMIA
     Dosage: 10 MILLIGRAM, QD
     Route: 048
     Dates: start: 20151202
  2. BRILINTA [Suspect]
     Active Substance: TICAGRELOR
     Indication: STENT PLACEMENT
     Dosage: 180 MILLIGRAM, QD
     Route: 048
     Dates: start: 20151202
  3. BRILINTA [Suspect]
     Active Substance: TICAGRELOR
     Indication: PERCUTANEOUS CORONARY INTERVENTION
  4. AMLODIPINE [Suspect]
     Active Substance: AMLODIPINE BESYLATE
     Indication: PRODUCT USED FOR UNKNOWN INDICATION
     Dosage: 10 MILLIGRAM, QD
     Route: 048
     Dates: start: 20151202, end: 20160125
  5. ATORVASTATIN [Concomitant]
     Active Substance: ATORVASTATIN
     Indication: CORONARY ARTERY DISEASE
  6. CARVEDILOL. [Concomitant]
     Active Substance: CARVEDILOL
     Indication: BIOPSY BLOOD VESSEL ABNORMAL
  7. NITROSTAT [Concomitant]
     Active Substance: NITROGLYCERIN
     Dosage: 0.4MG UNKNOWN
     Route: 060
     Dates: start: 20160204
  8. RANITIDINE. [Concomitant]
     Active Substance: RANITIDINE
     Indication: ABDOMINAL DISCOMFORT
  9. RANITIDINE. [Concomitant]
     Active Substance: RANITIDINE
     Indication: GASTRITIS PROPHYLAXIS
  10. COZAAR [Suspect]
     Active Substance: LOSARTAN POTASSIUM
     Indication: PRODUCT USED FOR UNKNOWN INDICATION
     Dosage: 50 MG, QD
     Route: 048
     Dates: start: 2015, end: 20150226
  11. COZAAR [Suspect]
     Active Substance: LOSARTAN POTASSIUM
     Dosage: 50 MG, QD
     Route: 048
     Dates: start: 20160226, end: 20160226
  12. BRILINTA [Suspect]
     Active Substance: TICAGRELOR
     Indication: ACUTE CORONARY SYNDROME
     Dosage: 180 MG, QD
     Route: 048
     Dates: start: 20151203, end: 20160413
  13. CARVEDILOL. [Concomitant]
     Active Substance: CARVEDILOL
     Indication: VASODILATATION
  14. RANITIDINE. [Concomitant]
     Active Substance: RANITIDINE
     Indication: GASTRIC DISORDER
     Dosage: 300 MILLIGRAM, QD
     Route: 048
     Dates: start: 20151202
  15. PRINIVIL [Suspect]
     Active Substance: LISINOPRIL
     Indication: HYPERTENSION
     Dosage: 10 MG, QD
     Route: 048
     Dates: start: 20151202, end: 20160221
  16. CYANOCOBALAMIN. [Concomitant]
     Active Substance: CYANOCOBALAMIN
     Indication: ANAEMIA VITAMIN B12 DEFICIENCY
  17. ZANTAC [Concomitant]
     Active Substance: RANITIDINE HYDROCHLORIDE
     Indication: GASTROOESOPHAGEAL REFLUX DISEASE
     Dosage: 300 MILLIGRAM, QD
     Route: 048
     Dates: start: 20151202
  18. BRILINTA [Suspect]
     Active Substance: TICAGRELOR
     Indication: CATHETERISATION CARDIAC
  19. ASPIRIN. [Concomitant]
     Active Substance: ASPIRIN
     Indication: CORONARY ARTERY DISEASE
     Dosage: 8.0MG UNKNOWN
     Route: 048
     Dates: start: 20151202
  20. CARVEDILOL. [Concomitant]
     Active Substance: CARVEDILOL
     Indication: CORONARY ARTERY DISEASE
     Dosage: 6.25 MG, QD
     Route: 048
     Dates: start: 20151202
  21. ISOSORBIDE MONONITRATE. [Concomitant]
     Active Substance: ISOSORBIDE MONONITRATE
     Dosage: 30.0MG UNKNOWN
     Route: 048
     Dates: start: 20160120

REACTIONS (22)
  - Rash [Recovering/Resolving]
  - Haemorrhage [Unknown]
  - Thrombosis [Recovered/Resolved]
  - Head discomfort [Not Recovered/Not Resolved]
  - Dyspnoea [Recovered/Resolved]
  - Contusion [Unknown]
  - Intentional product misuse [Unknown]
  - Angioedema [Recovering/Resolving]
  - Insomnia [Unknown]
  - Weight increased [Unknown]
  - Urticaria [Unknown]
  - Emotional distress [Unknown]
  - Sleep disorder [Not Recovered/Not Resolved]
  - Oral mucosal blistering [Unknown]
  - Epistaxis [Recovering/Resolving]
  - Sinus disorder [Unknown]
  - Wheezing [Unknown]
  - Loss of personal independence in daily activities [Recovering/Resolving]
  - Cough [Recovered/Resolved]
  - Dyspepsia [Unknown]
  - Headache [Recovering/Resolving]
  - Peripheral swelling [Unknown]

NARRATIVE: CASE EVENT DATE: 20151202
